FAERS Safety Report 16617445 (Version 3)
Quarter: 2019Q4

REPORT INFORMATION
  Report Type: Spontaneous
  Country: US (occurrence: US)
  Receive Date: 20190723
  Receipt Date: 20191025
  Transmission Date: 20200122
  Serious: Yes (Hospitalization, Congenital Anomaly, Other)
  Sender: FDA-Public Use
  Company Number: US-ASTRAZENECA-2018SF26154

PATIENT
  Age: 24088 Day
  Sex: Male
  Weight: 104.3 kg

DRUGS (40)
  1. LASIX [Concomitant]
     Active Substance: FUROSEMIDE
  2. PRILOSEC [Suspect]
     Active Substance: OMEPRAZOLE MAGNESIUM
     Indication: GASTROOESOPHAGEAL REFLUX DISEASE
     Dosage: GENERIC
     Route: 065
     Dates: start: 20181026, end: 20190410
  3. COREG [Concomitant]
     Active Substance: CARVEDILOL
  4. COUMARIN [Concomitant]
     Active Substance: COUMARIN
  5. SENNA [Concomitant]
     Active Substance: SENNA LEAF\SENNOSIDES\SENNOSIDES A AND B
  6. DEXTROSE. [Concomitant]
     Active Substance: DEXTROSE
  7. AMITRIPTYLINE [Concomitant]
     Active Substance: AMITRIPTYLINE
  8. INSULIN GLARGINE [Concomitant]
     Active Substance: INSULIN GLARGINE
  9. HYDRALAZINE [Concomitant]
     Active Substance: HYDRALAZINE HYDROCHLORIDE
  10. PROTONIX [Suspect]
     Active Substance: PANTOPRAZOLE SODIUM
     Indication: GASTRITIS PROPHYLAXIS
     Route: 065
     Dates: start: 2013, end: 2017
  11. ASPIRINE [Concomitant]
     Active Substance: ASPIRIN
  12. NIFEDIPINE. [Concomitant]
     Active Substance: NIFEDIPINE
  13. LISINOPRIL. [Concomitant]
     Active Substance: LISINOPRIL
  14. METOLAZONE. [Concomitant]
     Active Substance: METOLAZONE
  15. ALBUTEROL. [Concomitant]
     Active Substance: ALBUTEROL
  16. DOXAZOSIN [Concomitant]
     Active Substance: DOXAZOSIN MESYLATE
  17. FLOMAX [Concomitant]
     Active Substance: TAMSULOSIN HYDROCHLORIDE
  18. INSULIN ASPART [Concomitant]
     Active Substance: INSULIN ASPART
     Indication: DIABETES MELLITUS
  19. PRILOSEC [Suspect]
     Active Substance: OMEPRAZOLE MAGNESIUM
     Indication: GASTROOESOPHAGEAL REFLUX DISEASE
     Route: 048
     Dates: start: 20110225, end: 20170802
  20. BUDESONIDE. [Concomitant]
     Active Substance: BUDESONIDE
     Indication: CHRONIC OBSTRUCTIVE PULMONARY DISEASE
  21. BUMETANIDE. [Concomitant]
     Active Substance: BUMETANIDE
  22. CARVEDILOL. [Concomitant]
     Active Substance: CARVEDILOL
  23. NIFEDIPINE. [Concomitant]
     Active Substance: NIFEDIPINE
  24. ZOLPIDEM [Concomitant]
     Active Substance: ZOLPIDEM TARTRATE
  25. PROTONIX [Suspect]
     Active Substance: PANTOPRAZOLE SODIUM
     Indication: GASTROOESOPHAGEAL REFLUX DISEASE
     Route: 065
     Dates: start: 2013, end: 2017
  26. PROTONIX [Suspect]
     Active Substance: PANTOPRAZOLE SODIUM
     Indication: GASTRITIS PROPHYLAXIS
     Route: 065
     Dates: start: 20141019, end: 20170807
  27. LORTAB [Concomitant]
     Active Substance: ACETAMINOPHEN\HYDROCODONE BITARTRATE
  28. ALLOPURINOL. [Concomitant]
     Active Substance: ALLOPURINOL
     Indication: GOUT
  29. TAMSULOSIN [Concomitant]
     Active Substance: TAMSULOSIN
  30. LORATADINE. [Concomitant]
     Active Substance: LORATADINE
  31. FINASTERIDE. [Concomitant]
     Active Substance: FINASTERIDE
  32. VANCOMYCIN [Concomitant]
     Active Substance: VANCOMYCIN
  33. PROTHROMBIN [Concomitant]
     Active Substance: PROTHROMBIN
  34. PRILOSEC [Suspect]
     Active Substance: OMEPRAZOLE MAGNESIUM
     Indication: GASTROOESOPHAGEAL REFLUX DISEASE
     Route: 048
     Dates: start: 2013, end: 2017
  35. PROTONIX [Suspect]
     Active Substance: PANTOPRAZOLE SODIUM
     Indication: GASTROOESOPHAGEAL REFLUX DISEASE
     Route: 065
     Dates: start: 20141019, end: 20170807
  36. AMBIEN [Concomitant]
     Active Substance: ZOLPIDEM TARTRATE
  37. GABAPENTIN. [Concomitant]
     Active Substance: GABAPENTIN
  38. NIACIN. [Concomitant]
     Active Substance: NIACIN
  39. FERROUS SULFATE. [Concomitant]
     Active Substance: FERROUS SULFATE
  40. PREDNISONE. [Concomitant]
     Active Substance: PREDNISONE

REACTIONS (6)
  - Acute kidney injury [Not Recovered/Not Resolved]
  - Renal failure [Not Recovered/Not Resolved]
  - Chronic kidney disease [Not Recovered/Not Resolved]
  - Tubulointerstitial nephritis [Unknown]
  - End stage renal disease [Not Recovered/Not Resolved]
  - Renal impairment [Unknown]

NARRATIVE: CASE EVENT DATE: 20130106
